FAERS Safety Report 5425156-3 (Version None)
Quarter: 2007Q3

REPORT INFORMATION
  Report Type: 
  Country: None (occurrence: None)
  Receive Date: 20070824
  Receipt Date: 20070816
  Transmission Date: 20080115
  Serious: Yes (Other)
  Sender: FDA-Public Use
  Company Number: CA-ASTRAZENECA-2007UW19748

PATIENT
  Age: 46 Year
  Sex: Male

DRUGS (5)
  1. SYMBICORT [Suspect]
     Indication: ASTHMA
     Dosage: PRN
     Route: 055
  2. CHLORTRIPOLON [Concomitant]
     Indication: HYPERSENSITIVITY
  3. VENTOLIN [Concomitant]
  4. BECLOVENT [Concomitant]
  5. FLOVENT [Concomitant]

REACTIONS (1)
  - GINGIVAL PAIN [None]
